FAERS Safety Report 4530778-8 (Version None)
Quarter: 2004Q4

REPORT INFORMATION
  Report Type: 
  Country: None (occurrence: None)
  Receive Date: 20041129
  Receipt Date: 20040929
  Transmission Date: 20050328
  Serious: Yes (Disabling)
  Sender: FDA-Public Use
  Company Number: US_031299267

PATIENT
  Sex: Male

DRUGS (2)
  1. ZYPREXA [Suspect]
     Indication: DEPRESSION
     Dates: start: 20020901, end: 20021201
  2. ZYPREXA [Suspect]
     Indication: INSOMNIA
     Dates: start: 20020901, end: 20021201

REACTIONS (1)
  - DIABETES MELLITUS [None]
